FAERS Safety Report 11385775 (Version 2)
Quarter: 2016Q3

REPORT INFORMATION
  Report Type: Spontaneous
  Country: IT (occurrence: IT)
  Receive Date: 20150817
  Receipt Date: 20160721
  Transmission Date: 20161109
  Serious: Yes (Disabling)
  Sender: FDA-Public Use
  Company Number: IT-ROCHE-1621448

PATIENT
  Age: 62 Year
  Sex: Male

DRUGS (2)
  1. BEVACIZUMAB [Suspect]
     Active Substance: BEVACIZUMAB
     Indication: METASTASES TO BONE
     Dosage: LAST DOSE PRIOR TO SAE ON 01/APR/2014
     Route: 065
     Dates: start: 20130901
  2. ZOMETA [Suspect]
     Active Substance: ZOLEDRONIC ACID
     Indication: METASTASES TO BONE
     Dosage: 4 MG 1 VIAL + 1 X 5 ML VIAL SOLVENT?POWDER AND SOLVENT FOR SOLUTION FOR INTRAVENOUS INFUSION
     Route: 042
     Dates: start: 20130901, end: 20150201

REACTIONS (3)
  - Osteonecrosis of jaw [Not Recovered/Not Resolved]
  - Pain [Not Recovered/Not Resolved]
  - Gingival injury [Not Recovered/Not Resolved]

NARRATIVE: CASE EVENT DATE: 20140526
